FAERS Safety Report 24543134 (Version 1)
Quarter: 2024Q4

REPORT INFORMATION
  Report Type: Spontaneous
  Country: NL (occurrence: NL)
  Receive Date: 20241024
  Receipt Date: 20241024
  Transmission Date: 20250115
  Serious: Yes (Other)
  Sender: RANBAXY
  Company Number: NL-LRB-01000291

PATIENT
  Age: 60 Year
  Sex: Male
  Weight: 75 kg

DRUGS (3)
  1. ATORVASTATIN [Suspect]
     Active Substance: ATORVASTATIN
     Indication: Hypercholesterolaemia
     Dosage: 20 MILLIGRAM, DAILY
     Route: 065
     Dates: start: 20240425
  2. ALBUTEROL [Concomitant]
     Active Substance: ALBUTEROL
     Indication: Product used for unknown indication
     Dosage: 200 MICROGRAM, UNK
     Route: 065
  3. FLUTICASON, FLIXOTIDE DISKUS [Concomitant]
     Indication: Product used for unknown indication
     Dosage: 100 MICROGRAM, UNK
     Route: 065

REACTIONS (4)
  - Erectile dysfunction [Recovering/Resolving]
  - Myalgia [Not Recovered/Not Resolved]
  - Somnolence [Recovering/Resolving]
  - Fatigue [Recovering/Resolving]
